FAERS Safety Report 10156900 (Version 1)
Quarter: 2014Q2

REPORT INFORMATION
  Report Type: Spontaneous
  Country: NL (occurrence: NL)
  Receive Date: 20140507
  Receipt Date: 20140507
  Transmission Date: 20141212
  Serious: Yes (Other)
  Sender: FDA-Public Use
  Company Number: NL-JNJFOC-20140502870

PATIENT
  Age: 77 Year
  Sex: Male

DRUGS (5)
  1. XARELTO [Suspect]
     Indication: ATRIAL FIBRILLATION
     Route: 048
     Dates: start: 20140228, end: 20140422
  2. XARELTO [Suspect]
     Indication: CEREBROVASCULAR ACCIDENT PROPHYLAXIS
     Route: 048
     Dates: start: 20140228, end: 20140422
  3. PERINDOPRIL [Concomitant]
     Route: 065
  4. BISOPROLOL [Concomitant]
     Route: 065
  5. TAMBOCOR [Concomitant]
     Route: 065

REACTIONS (2)
  - Myalgia [Recovering/Resolving]
  - Renal impairment [Unknown]
